FAERS Safety Report 6475180-7 (Version None)
Quarter: 2009Q4

REPORT INFORMATION
  Report Type: 
  Country: None (occurrence: None)
  Receive Date: 20091204
  Receipt Date: 20090519
  Transmission Date: 20100525
  Serious: Yes (Hospitalization)
  Sender: FDA-Public Use
  Company Number: FR-ELI_LILLY_AND_COMPANY-FR200903007594

PATIENT
  Age: 74 Year
  Sex: Female
  Weight: 70 kg

DRUGS (6)
  1. FORTEO [Suspect]
     Indication: OSTEOPOROSIS
     Dosage: 20 UG, DAILY (1/D)
     Route: 065
     Dates: start: 20090206, end: 20090328
  2. FORTEO [Suspect]
     Dosage: 20 UG, DAILY (1/D)
     Route: 058
     Dates: start: 20090429
  3. CORTANCYL [Concomitant]
     Indication: SARCOIDOSIS
     Dosage: 16 MG, DAILY (1/D)
     Route: 048
     Dates: start: 20071101
  4. MIANSERIN [Concomitant]
     Indication: DEPRESSION
     Dosage: 30 MG, DAILY (1/D)
     Route: 048
  5. PRAZEPAM [Concomitant]
     Indication: DEPRESSION
     Dosage: 100 MG, DAILY (1/D)
  6. OROCAL D(3) [Concomitant]
     Indication: OSTEOPOROSIS
     Dosage: 500 MG, DAILY (1/D)
     Route: 048

REACTIONS (3)
  - CATARACT SUBCAPSULAR [None]
  - HEAD INJURY [None]
  - VERTIGO [None]
